FAERS Safety Report 22659609 (Version 1)
Quarter: 2023Q2

REPORT INFORMATION
  Report Type: Report from Study
  Country: US (occurrence: US)
  Receive Date: 20230630
  Receipt Date: 20230630
  Transmission Date: 20230722
  Serious: No
  Sender: FDA-Public Use
  Company Number: US-002147023-NVSC2023US149215

PATIENT
  Sex: Male

DRUGS (1)
  1. ENTRESTO [Suspect]
     Active Substance: SACUBITRIL\VALSARTAN
     Indication: Heart rate irregular
     Dosage: 1 DOSAGE FORM, BID
     Route: 048

REACTIONS (3)
  - Peripheral swelling [Unknown]
  - Memory impairment [Unknown]
  - Product use in unapproved indication [Unknown]
